FAERS Safety Report 19139698 (Version 1)
Quarter: 2021Q2

REPORT INFORMATION
  Report Type: Spontaneous
  Country: US (occurrence: US)
  Receive Date: 20210415
  Receipt Date: 20210415
  Transmission Date: 20210717
  Serious: Yes (Other)
  Sender: FDA-Public Use
  Company Number: None

PATIENT
  Age: 23 Year
  Sex: Female
  Weight: 70.31 kg

DRUGS (1)
  1. KYLEENA [Suspect]
     Active Substance: LEVONORGESTREL
     Indication: CONTRACEPTION
     Dates: start: 20191211, end: 20201210

REACTIONS (6)
  - Haemorrhage [None]
  - Pregnancy with contraceptive device [None]
  - Ectopic pregnancy [None]
  - Maternal exposure timing unspecified [None]
  - Fallopian tube perforation [None]
  - Maternal drugs affecting foetus [None]

NARRATIVE: CASE EVENT DATE: 20201202
